FAERS Safety Report 17886193 (Version 2)
Quarter: 2020Q2

REPORT INFORMATION
  Report Type: Spontaneous
  Country: JP (occurrence: JP)
  Receive Date: 20200611
  Receipt Date: 20200624
  Transmission Date: 20200714
  Serious: Yes (Other)
  Sender: FDA-Public Use
  Company Number: JP-PFIZER INC-2020226528

PATIENT
  Age: 77 Year
  Sex: Male

DRUGS (3)
  1. DOCETAXEL. [Suspect]
     Active Substance: DOCETAXEL
     Indication: OESOPHAGEAL SQUAMOUS CELL CARCINOMA
     Dosage: 70 MG/M2, CYCLIC (DAY 1 (REPEATED EVERY 3 WEEKS))
  2. CISPLATIN. [Suspect]
     Active Substance: CISPLATIN
     Indication: OESOPHAGEAL SQUAMOUS CELL CARCINOMA
     Dosage: 70 MG/M2, CYCLIC (DAY 1 (REPEATED EVERY 3 WEEKS))
  3. FLUOROURACIL. [Suspect]
     Active Substance: FLUOROURACIL
     Indication: OESOPHAGEAL SQUAMOUS CELL CARCINOMA
     Dosage: 750 MG/M2, CYCLIC (DAYS 1-5 (REPEATED EVERY 3 WEEKS) (750 MG/M2, CYCLIC))

REACTIONS (2)
  - Haematochezia [Recovering/Resolving]
  - Therapeutic product effect incomplete [Unknown]
